FAERS Safety Report 22600843 (Version 1)
Quarter: 2023Q2

REPORT INFORMATION
  Report Type: Spontaneous
  Country: IN (occurrence: IN)
  Receive Date: 20230614
  Receipt Date: 20230614
  Transmission Date: 20230721
  Serious: Yes (Other)
  Sender: FDA-Public Use
  Company Number: IN-SUN PHARMACEUTICAL INDUSTRIES LTD-2023R1-387509

PATIENT
  Age: 46 Year
  Sex: Female

DRUGS (4)
  1. CLOBAZAM [Suspect]
     Active Substance: CLOBAZAM
     Indication: Seizure
     Dosage: 0.2 MILLIGRAM/KILOGRAM
     Route: 048
  2. LEVETIRACETAM [Suspect]
     Active Substance: LEVETIRACETAM
     Indication: Seizure
     Dosage: 40 MG/KG AND MAINTENANCE 20 MG/KG TWICE DAILY
     Route: 042
  3. PHENYTOIN [Suspect]
     Active Substance: PHENYTOIN
     Indication: Seizure
     Dosage: LOADING DOSE: 20 MG/KG FOLLOWED BY MAINTENANCE 5 MG/KG
     Route: 042
  4. VALPROATE [Suspect]
     Active Substance: VALPROIC ACID
     Indication: Seizure
     Dosage: LOADING DOSE: 20 MG/KG FOLLOWED BY MAINTENANCE 20 MG/KG
     Route: 042

REACTIONS (1)
  - Drug resistance [Unknown]
